FAERS Safety Report 26003397 (Version 1)
Quarter: 2025Q4

REPORT INFORMATION
  Report Type: Report from Study
  Country: CO (occurrence: CO)
  Receive Date: 20251106
  Receipt Date: 20251106
  Transmission Date: 20260117
  Serious: Yes (Death)
  Sender: ALEXION PHARMACEUTICALS
  Company Number: CO-AstraZeneca-CH-00984544A

PATIENT
  Age: 60 Year
  Sex: Female

DRUGS (1)
  1. DURVALUMAB [Suspect]
     Active Substance: DURVALUMAB
     Indication: Bile duct cancer
     Dosage: 1500 MILLIGRAM, QMONTH
     Dates: start: 20250703

REACTIONS (2)
  - Respiratory arrest [Fatal]
  - Fall [Fatal]

NARRATIVE: CASE EVENT DATE: 20251029
